FAERS Safety Report 20723872 (Version 6)
Quarter: 2023Q2

REPORT INFORMATION
  Report Type: Report from Study
  Country: TH (occurrence: TH)
  Receive Date: 20220419
  Receipt Date: 20230616
  Transmission Date: 20230721
  Serious: Yes (Hospitalization, Other)
  Sender: FDA-Public Use
  Company Number: TH-JNJFOC-20220247324

PATIENT
  Age: 61 Year
  Sex: Female

DRUGS (3)
  1. BORTEZOMIB [Suspect]
     Active Substance: BORTEZOMIB
     Indication: Plasma cell myeloma
     Dosage: 2 MILLIGRAM, 1/WEEK
     Route: 058
     Dates: start: 20220210, end: 20220328
  2. BORTEZOMIB [Suspect]
     Active Substance: BORTEZOMIB
     Dosage: 2 MILLIGRAM
     Route: 058
     Dates: start: 20220210, end: 20220328
  3. DARATUMUMAB [Suspect]
     Active Substance: DARATUMUMAB
     Indication: Plasma cell myeloma
     Dosage: 1000 MILLIGRAM, 1/WEEK
     Route: 041
     Dates: start: 20220210, end: 20220328

REACTIONS (6)
  - Cerebral haemorrhage [Not Recovered/Not Resolved]
  - Cystitis [Not Recovered/Not Resolved]
  - Platelet count decreased [Recovering/Resolving]
  - Diarrhoea [Unknown]
  - Vomiting [Unknown]
  - Drug ineffective [Unknown]

NARRATIVE: CASE EVENT DATE: 20220101
